APPROVED DRUG PRODUCT: ALBUTEROL SULFATE
Active Ingredient: ALBUTEROL SULFATE
Strength: EQ 0.042% BASE
Dosage Form/Route: SOLUTION;INHALATION
Application: A076355 | Product #001 | TE Code: AN
Applicant: NEPHRON PHARMACEUTICALS CORP
Approved: Jun 28, 2004 | RLD: No | RS: Yes | Type: RX